FAERS Safety Report 21347431 (Version 1)
Quarter: 2022Q3

REPORT INFORMATION
  Report Type: Spontaneous
  Country: US (occurrence: US)
  Receive Date: 20220919
  Receipt Date: 20220919
  Transmission Date: 20221027
  Serious: No
  Sender: FDA-Public Use
  Company Number: US-JNJFOC-20220928699

PATIENT
  Age: 24 Year
  Sex: Male

DRUGS (1)
  1. PREZISTA [Suspect]
     Active Substance: DARUNAVIR ETHANOLATE
     Indication: HIV infection
     Dosage: 3 YEARS 2 MONTHS 3
     Route: 048
     Dates: start: 20110525, end: 20140728

REACTIONS (3)
  - Nausea [Unknown]
  - Diarrhoea [Unknown]
  - Lipoma [Unknown]

NARRATIVE: CASE EVENT DATE: 20110603
